FAERS Safety Report 13751248 (Version 1)
Quarter: 2017Q3

REPORT INFORMATION
  Report Type: Spontaneous
  Country: US (occurrence: US)
  Receive Date: 20170713
  Receipt Date: 20170713
  Transmission Date: 20171127
  Serious: No
  Sender: FDA-Public Use
  Company Number: US-ASTELLAS-2017US012671

PATIENT
  Age: 59 Year
  Sex: Male

DRUGS (1)
  1. MYRBETRIQ [Suspect]
     Active Substance: MIRABEGRON
     Indication: PRODUCT USED FOR UNKNOWN INDICATION
     Dosage: UNK UNK, ONCE DAILY
     Route: 065
     Dates: start: 20170327

REACTIONS (4)
  - Blood pressure increased [Unknown]
  - Malaise [Unknown]
  - Heart rate increased [Unknown]
  - Off label use [Unknown]

NARRATIVE: CASE EVENT DATE: 201703
